FAERS Safety Report 22231526 (Version 1)
Quarter: 2023Q2

REPORT INFORMATION
  Report Type: Spontaneous
  Country: SI (occurrence: SI)
  Receive Date: 20230420
  Receipt Date: 20230420
  Transmission Date: 20230722
  Serious: Yes (Hospitalization, Other)
  Sender: FDA-Public Use
  Company Number: SI-BoehringerIngelheim-2023-BI-231225

PATIENT
  Age: 85 Year
  Sex: Female

DRUGS (9)
  1. GLIQUIDONE [Suspect]
     Active Substance: GLIQUIDONE
     Indication: Product used for unknown indication
  2. EMPAGLIFLOZIN [Suspect]
     Active Substance: EMPAGLIFLOZIN
     Indication: Product used for unknown indication
  3. ELIQUIS [Concomitant]
     Active Substance: APIXABAN
     Indication: Product used for unknown indication
  4. AMLODIPINE\INDAPAMIDE\PERINDOPRIL [Concomitant]
     Active Substance: AMLODIPINE\INDAPAMIDE\PERINDOPRIL
     Indication: Product used for unknown indication
     Dosage: 8/10/2.5 MG
  5. KAMIREN XL [Concomitant]
     Indication: Product used for unknown indication
  6. BISOPROLOL FUMARATE [Concomitant]
     Active Substance: BISOPROLOL FUMARATE
     Indication: Product used for unknown indication
  7. LASIX [Concomitant]
     Active Substance: FUROSEMIDE
     Indication: Product used for unknown indication
  8. PROLIA [Concomitant]
     Active Substance: DENOSUMAB
     Indication: Product used for unknown indication
  9. Folacin [Concomitant]
     Indication: Product used for unknown indication

REACTIONS (11)
  - Respiratory failure [Unknown]
  - Cardiac failure [Unknown]
  - Cardiomegaly [Not Recovered/Not Resolved]
  - Pulmonary hypertension [Unknown]
  - Pulmonary oedema [Recovering/Resolving]
  - N-terminal prohormone brain natriuretic peptide increased [Unknown]
  - Blood creatinine increased [Unknown]
  - Pleural effusion [Recovering/Resolving]
  - Hypertensive heart disease [Unknown]
  - Left ventricular end-diastolic pressure increased [Unknown]
  - Right ventricular dysfunction [Unknown]
